FAERS Safety Report 23157764 (Version 2)
Quarter: 2023Q4

REPORT INFORMATION
  Report Type: Spontaneous
  Country: ES (occurrence: ES)
  Receive Date: 20231108
  Receipt Date: 20231113
  Transmission Date: 20240109
  Serious: Yes (Other)
  Sender: FDA-Public Use
  Company Number: ES-BAXTER-2023BAX034852

PATIENT
  Age: 59 Year
  Sex: Female
  Weight: 73.2 kg

DRUGS (4)
  1. EXTRANEAL [Suspect]
     Active Substance: CALCIUM CHLORIDE\ICODEXTRIN\MAGNESIUM CHLORIDE\SODIUM CHLORIDE\SODIUM LACTATE
     Dosage: 1 BAG DAILY 6 DAYS A WEEK
     Route: 033
  2. EXTRANEAL [Suspect]
     Active Substance: CALCIUM CHLORIDE\ICODEXTRIN\MAGNESIUM CHLORIDE\SODIUM CHLORIDE\SODIUM LACTATE
     Dosage: 1 BAG 1 DAY A WEEK
     Route: 033
  3. ANHYDROUS DEXTROSE\CALCIUM CHLORIDE\MAGNESIUM CHLORIDE\SODIUM BICARBON [Suspect]
     Active Substance: ANHYDROUS DEXTROSE\CALCIUM CHLORIDE\MAGNESIUM CHLORIDE\SODIUM BICARBONATE\SODIUM CHLORIDE\SODIUM LAC
     Dosage: 2 BAGS DAILY 6 DAYS A WEEK
     Route: 033
  4. NUTRINEAL PD4 [Suspect]
     Active Substance: AMINO ACIDS\CALCIUM CHLORIDE\MAGNESIUM CHLORIDE\SODIUM CHLORIDE\SODIUM LACTATE
     Dosage: 1 BAG DAILY 6 DAYS A WEEK
     Route: 033

REACTIONS (3)
  - Peritonitis bacterial [Recovered/Resolved]
  - Peritoneal cloudy effluent [Recovered/Resolved]
  - Peritoneal dialysis complication [Unknown]

NARRATIVE: CASE EVENT DATE: 20231024
